FAERS Safety Report 19298698 (Version 8)
Quarter: 2021Q3

REPORT INFORMATION
  Report Type: Report from Study
  Country: GB (occurrence: GB)
  Receive Date: 20210525
  Receipt Date: 20210813
  Transmission Date: 20211014
  Serious: Yes (Hospitalization)
  Sender: FDA-Public Use
  Company Number: GB-ROCHE-2685187

PATIENT
  Age: 73 Year
  Sex: Male
  Weight: 99.8 kg

DRUGS (5)
  1. BENDAMUSTINE [Suspect]
     Active Substance: BENDAMUSTINE
     Indication: MANTLE CELL LYMPHOMA
     Route: 041
     Dates: start: 20200309
  2. CYTARABINE. [Suspect]
     Active Substance: CYTARABINE
     Dosage: MOST RECENT DOSE ON 11/MAR/2020
     Route: 041
     Dates: start: 20200115, end: 20200303
  3. CYTARABINE. [Suspect]
     Active Substance: CYTARABINE
     Indication: MANTLE CELL LYMPHOMA
     Dosage: MOST RECENT DOSE ON 11/MAR/2020
     Route: 041
     Dates: start: 20200309
  4. RITUXIMAB. [Suspect]
     Active Substance: RITUXIMAB
     Indication: MANTLE CELL LYMPHOMA
     Route: 041
     Dates: start: 20200309
  5. RITUXIMAB. [Suspect]
     Active Substance: RITUXIMAB
     Route: 041
     Dates: start: 20200303, end: 20200309

REACTIONS (2)
  - Pneumonia [Recovered/Resolved]
  - Neutropenic sepsis [Recovered/Resolved]

NARRATIVE: CASE EVENT DATE: 20200321
